FAERS Safety Report 13678139 (Version 1)
Quarter: 2017Q2

REPORT INFORMATION
  Report Type: Spontaneous
  Country: DE (occurrence: DE)
  Receive Date: 20170622
  Receipt Date: 20170622
  Transmission Date: 20170830
  Serious: Yes (Other)
  Sender: FDA-Public Use
  Company Number: DE-BAYER-2017-114916

PATIENT
  Age: 53 Year
  Sex: Female
  Weight: 68 kg

DRUGS (1)
  1. MIRENA [Suspect]
     Active Substance: LEVONORGESTREL
     Dosage: 20 MCG/24HR, CONT
     Route: 015
     Dates: start: 2000

REACTIONS (7)
  - Autoimmune thyroiditis [Unknown]
  - Depression [Unknown]
  - Intervertebral disc protrusion [Unknown]
  - Gait disturbance [Unknown]
  - Arthralgia [Unknown]
  - Disturbance in attention [Unknown]
  - Blood pressure fluctuation [Unknown]

NARRATIVE: CASE EVENT DATE: 2012
